FAERS Safety Report 25212052 (Version 2)
Quarter: 2025Q2

REPORT INFORMATION
  Report Type: Spontaneous
  Country: PL (occurrence: PL)
  Receive Date: 20250418
  Receipt Date: 20250423
  Transmission Date: 20250716
  Serious: Yes (Hospitalization)
  Sender: ELI LILLY AND COMPANY
  Company Number: PL-ROCHE-10000249797

PATIENT
  Age: 52 Year
  Sex: Male
  Weight: 75.5 kg

DRUGS (7)
  1. PIRTOBRUTINIB [Suspect]
     Active Substance: PIRTOBRUTINIB
     Indication: Chronic lymphocytic leukaemia
     Dosage: 200 MG, DAILY
     Route: 048
     Dates: start: 20240709, end: 20250318
  2. RITUXIMAB [Suspect]
     Active Substance: RITUXIMAB
     Indication: Chronic lymphocytic leukaemia
     Route: 042
     Dates: start: 20240709, end: 20241223
  3. VENETOCLAX [Suspect]
     Active Substance: VENETOCLAX
     Indication: Chronic lymphocytic leukaemia
     Dosage: 400 MG, DAILY
     Route: 048
     Dates: start: 20241015, end: 20250318
  4. LISINOPRIL [Concomitant]
     Active Substance: LISINOPRIL
     Indication: Product used for unknown indication
     Route: 065
     Dates: start: 20231114
  5. LYRICA [Concomitant]
     Active Substance: PREGABALIN
     Indication: Product used for unknown indication
     Route: 065
     Dates: start: 20250121
  6. CEFUROXIME AXETIL [Concomitant]
     Active Substance: CEFUROXIME AXETIL
     Indication: Product used for unknown indication
     Route: 065
     Dates: start: 20250318
  7. FILGRASTIM [Concomitant]
     Active Substance: FILGRASTIM
     Indication: Product used for unknown indication
     Route: 065
     Dates: start: 20250318

REACTIONS (4)
  - Syncope [Recovered/Resolved]
  - C-reactive protein increased [Unknown]
  - Haematocrit decreased [Unknown]
  - Haemoglobin decreased [Unknown]

NARRATIVE: CASE EVENT DATE: 20250319
